FAERS Safety Report 14013714 (Version 3)
Quarter: 2017Q4

REPORT INFORMATION
  Report Type: Spontaneous
  Country: US (occurrence: US)
  Receive Date: 20170926
  Receipt Date: 20171113
  Transmission Date: 20180321
  Serious: Yes (Hospitalization)
  Sender: FDA-Public Use
  Company Number: US-ACTELION-A-NJ2017-159923

PATIENT
  Age: 68 Year
  Sex: Male
  Weight: 68.27 kg

DRUGS (2)
  1. LETAIRIS [Concomitant]
     Active Substance: AMBRISENTAN
     Indication: PULMONARY ARTERIAL HYPERTENSION
     Dosage: UNK UNK, BID
  2. UPTRAVI [Suspect]
     Active Substance: SELEXIPAG
     Indication: PULMONARY ARTERIAL HYPERTENSION
     Dosage: 1600 MCG, BID
     Route: 048

REACTIONS (7)
  - Hypertension [Unknown]
  - Anxiety [Unknown]
  - Dyspnoea [Unknown]
  - Drug dose omission [Unknown]
  - Asthenia [Unknown]
  - Cerebrovascular accident [Unknown]
  - Nausea [Unknown]
